FAERS Safety Report 9833789 (Version 2)
Quarter: 2014Q1

REPORT INFORMATION
  Report Type: Spontaneous
  Country: US (occurrence: US)
  Receive Date: 20140122
  Receipt Date: 20140224
  Transmission Date: 20141002
  Serious: No
  Sender: FDA-Public Use
  Company Number: US-BIOGENIDEC-2014BI004766

PATIENT
  Age: 57 Year
  Sex: Female

DRUGS (11)
  1. TECFIDERA [Suspect]
     Indication: MULTIPLE SCLEROSIS
     Dates: start: 201311, end: 201401
  2. TECFIDERA [Suspect]
     Indication: MULTIPLE SCLEROSIS
     Route: 048
     Dates: start: 201312
  3. TECFIDERA [Suspect]
     Indication: MULTIPLE SCLEROSIS
     Route: 048
     Dates: start: 20140207
  4. CIPROFLOXACIN ER [Concomitant]
  5. ALEVE [Concomitant]
  6. ASPIRIN EC [Concomitant]
  7. METFORMIN HCL [Concomitant]
  8. LEVEMIR FLEXPEN [Concomitant]
  9. SEROQUEL [Concomitant]
  10. LEXAPRO [Concomitant]
  11. CLONAZEPAM [Concomitant]

REACTIONS (12)
  - Dyspnoea [Recovered/Resolved]
  - Palpitations [Recovered/Resolved]
  - Pallor [Recovered/Resolved]
  - Malaise [Recovered/Resolved]
  - Fatigue [Recovered/Resolved]
  - Flatulence [Unknown]
  - Faeces pale [Unknown]
  - Diarrhoea [Recovered/Resolved]
  - Erythema [Recovered/Resolved]
  - Pruritus [Recovered/Resolved]
  - Abdominal discomfort [Unknown]
  - Abdominal pain [Unknown]
